FAERS Safety Report 6895930-5 (Version None)
Quarter: 2010Q3

REPORT INFORMATION
  Report Type: 
  Country: None (occurrence: None)
  Receive Date: 20100802
  Receipt Date: 20100726
  Transmission Date: 20110219
  Serious: Yes (Death, Hospitalization)
  Sender: FDA-Public Use
  Company Number: DE-ROCHE-716766

PATIENT
  Sex: Female

DRUGS (10)
  1. BEVACIZUMAB [Suspect]
     Indication: NON-SMALL CELL LUNG CANCER
     Dosage: FREQUENCY: DAY 1 EVERY 21 DAYS.
     Route: 042
     Dates: start: 20100610
  2. PEMETREXED [Suspect]
     Indication: NON-SMALL CELL LUNG CANCER
     Dosage: FORM: VIAL, FREQUENCY: DAY 1 EVERY 21 DAYS.
     Route: 042
     Dates: start: 20100610
  3. CISPLATIN [Suspect]
     Indication: NON-SMALL CELL LUNG CANCER
     Dosage: FREQUENCY: DAY 1 EVERY 21 DAYS.
     Route: 042
     Dates: start: 20100610
  4. MCP [Concomitant]
     Indication: NAUSEA
     Dates: start: 20100611
  5. LORAZEPAM [Concomitant]
     Indication: PAIN
     Dates: start: 20100613
  6. MORPHINE [Concomitant]
     Indication: PAIN
     Dates: start: 20100614
  7. SODIUM PICOSULFATE [Concomitant]
     Indication: CONSTIPATION
     Dates: start: 20100629
  8. FOLIC ACID [Concomitant]
     Dates: start: 20100610, end: 20100707
  9. VITAMIN B-12 [Concomitant]
     Dates: start: 20100610, end: 20100610
  10. DEXAMETHASONE [Concomitant]
     Dates: start: 20100630, end: 20100702

REACTIONS (3)
  - COMA [None]
  - DEHYDRATION [None]
  - PNEUMONIA ASPIRATION [None]
